FAERS Safety Report 4932257-2 (Version None)
Quarter: 2006Q1

REPORT INFORMATION
  Report Type: 
  Country: None (occurrence: None)
  Receive Date: 20060228
  Receipt Date: 20060220
  Transmission Date: 20060701
  Serious: Yes (Other)
  Sender: FDA-Public Use
  Company Number: 2006025644

PATIENT
  Sex: Male

DRUGS (3)
  1. EPANUTIN SUSPESION (PHENYTOIN SODIUM) [Suspect]
     Indication: ILL-DEFINED DISORDER
     Dosage: 250 MG (125 MG, 2 IN 1 D), ORAL
     Route: 048
  2. TEGRETOL [Suspect]
     Indication: ILL-DEFINED DISORDER
     Dosage: 50 MG (1 D), ORAL
     Route: 048
  3. FRESUBIN (CARBOHYDRATES NOS, FATTY ACIDS NOS, MINERALS NOS, PROTEINS N [Suspect]
     Indication: ILL-DEFINED DISORDER
     Dosage: ORAL
     Route: 048

REACTIONS (2)
  - CONDITION AGGRAVATED [None]
  - CONVULSION [None]
